FAERS Safety Report 7276342-1 (Version None)
Quarter: 2011Q1

REPORT INFORMATION
  Report Type: 
  Country: None (occurrence: None)
  Receive Date: 20110131
  Receipt Date: 20110119
  Transmission Date: 20110831
  Serious: Yes (Hospitalization)
  Sender: FDA-Public Use
  Company Number: OMPQ-NO-1005S-0326

PATIENT
  Age: 69 Year
  Sex: Female
  Weight: 85 kg

DRUGS (10)
  1. AMLODIPINE [Concomitant]
  2. METOKLOPRAMIDE [Concomitant]
  3. PLATYPHYLLINI [Concomitant]
  4. PAPAVERINE [Concomitant]
  5. ENALAPRIL [Concomitant]
  6. AMOXICILLIN CLAVULNATE [Concomitant]
  7. OMEPRAZOLE [Concomitant]
  8. OCTREOTIDE ACETATE [Concomitant]
  9. OMNIPAQUE 70 [Suspect]
     Indication: PRODUCT USED FOR UNKNOWN INDICATION
     Dosage: 50 ML, SINGLE DOSE, INTRADUCTAL ; 50 ML, SINGLE DOSE, INTRADUCTAL
     Dates: start: 20100421, end: 20100421
  10. OMNIPAQUE 70 [Suspect]
     Indication: PRODUCT USED FOR UNKNOWN INDICATION
     Dosage: 50 ML, SINGLE DOSE, INTRADUCTAL ; 50 ML, SINGLE DOSE, INTRADUCTAL
     Dates: start: 20100506, end: 20100506

REACTIONS (3)
  - HYPOTENSION [None]
  - HAEMODIALYSIS [None]
  - RENAL FAILURE ACUTE [None]
